FAERS Safety Report 14770264 (Version 2)
Quarter: 2018Q2

REPORT INFORMATION
  Report Type: Spontaneous
  Country: US (occurrence: US)
  Receive Date: 20180417
  Receipt Date: 20180524
  Transmission Date: 20180711
  Serious: No
  Sender: FDA-Public Use
  Company Number: US-PFIZER INC-2018154739

PATIENT
  Age: 72 Year
  Sex: Female
  Weight: 81 kg

DRUGS (3)
  1. IBRANCE [Suspect]
     Active Substance: PALBOCICLIB
     Indication: BREAST CANCER METASTATIC
     Dosage: UNK UNK, CYCLIC (ONCE A DAY FOR 21 DAYS AND OFF FOR 7 DAYS)
     Route: 048
     Dates: start: 2017
  2. IBRANCE [Suspect]
     Active Substance: PALBOCICLIB
     Dosage: 125 MG, UNK
  3. FASLODEX [Suspect]
     Active Substance: FULVESTRANT
     Indication: BREAST CANCER METASTATIC
     Dosage: UNK, MONTHLY (ONCE A MONTH)

REACTIONS (1)
  - Confusional state [Not Recovered/Not Resolved]

NARRATIVE: CASE EVENT DATE: 2017
